FAERS Safety Report 6774052-8 (Version None)
Quarter: 2010Q2

REPORT INFORMATION
  Report Type: 
  Country: None (occurrence: None)
  Receive Date: 20100615
  Receipt Date: 20100615
  Transmission Date: 20101027
  Serious: Yes (Other)
  Sender: FDA-Public Use
  Company Number: None

PATIENT
  Age: 81 Year
  Sex: Male
  Weight: 70.7611 kg

DRUGS (1)
  1. DILTIAZEM [Suspect]
     Indication: HYPERTENSION
     Dosage: 240MG DAILY PO
     Route: 048
     Dates: start: 20100101, end: 20100613

REACTIONS (2)
  - JOINT SWELLING [None]
  - OEDEMA PERIPHERAL [None]
